FAERS Safety Report 16378961 (Version 1)
Quarter: 2019Q2

REPORT INFORMATION
  Report Type: Spontaneous
  Country: US (occurrence: US)
  Receive Date: 20190531
  Receipt Date: 20190531
  Transmission Date: 20190711
  Serious: No
  Sender: FDA-Public Use
  Company Number: US-SA-2019SA149731

PATIENT
  Age: 67 Year
  Sex: Male

DRUGS (1)
  1. PRALUENT [Suspect]
     Active Substance: ALIROCUMAB
     Dosage: UNK MG
     Route: 058
     Dates: start: 201904

REACTIONS (3)
  - Quality of life decreased [Unknown]
  - Influenza [Unknown]
  - Nasopharyngitis [Unknown]
